FAERS Safety Report 5092950-0 (Version None)
Quarter: 2006Q3

REPORT INFORMATION
  Report Type: 
  Country: None (occurrence: None)
  Receive Date: 20060828
  Receipt Date: 20060815
  Transmission Date: 20061208
  Serious: Yes (Life-Threatening)
  Sender: FDA-Public Use
  Company Number: DEU-2006-0002420

PATIENT
  Age: 88 Year
  Sex: Female
  Weight: 62.8 kg

DRUGS (1)
  1. OXYCODONE HCL [Suspect]
     Indication: PAIN
     Dosage: 20 MG, BID, ORAL
     Route: 048
     Dates: end: 20060802

REACTIONS (3)
  - ACUTE ABDOMEN [None]
  - ILEUS [None]
  - VOMITING PROJECTILE [None]
